FAERS Safety Report 20332375 (Version 1)
Quarter: 2022Q1

REPORT INFORMATION
  Report Type: Report from Study
  Country: CA (occurrence: CA)
  Receive Date: 20220113
  Receipt Date: 20220113
  Transmission Date: 20220423
  Serious: Yes (Other)
  Sender: FDA-Public Use
  Company Number: CA-JNJFOC-20200948767

PATIENT
  Age: 31 Year
  Sex: Female
  Weight: 56.5 kg

DRUGS (8)
  1. REMICADE [Suspect]
     Active Substance: INFLIXIMAB
     Indication: Colitis ulcerative
     Dosage: UNIT DOSE - 5 MG/KG. 2ND LOADING DOSE OF REMICADE ON 7-OCT-2020.
     Route: 042
     Dates: start: 20200923
  2. REMICADE [Suspect]
     Active Substance: INFLIXIMAB
     Route: 042
  3. REMICADE [Suspect]
     Active Substance: INFLIXIMAB
     Route: 042
     Dates: start: 20220107
  4. BENADRYL                           /00000402/ [Concomitant]
     Indication: Product used for unknown indication
     Route: 048
  5. HYDROCORTISONE ACETATE [Concomitant]
     Active Substance: HYDROCORTISONE ACETATE
     Indication: Product used for unknown indication
     Route: 041
  6. TYLENOL [Concomitant]
     Active Substance: ACETAMINOPHEN
     Indication: Product used for unknown indication
     Route: 065
  7. PRENATAL VITAMINS [ASCORBIC ACID;BIOTIN;MINERALS NOS;NICOTINIC ACID;RE [Concomitant]
     Indication: Product used for unknown indication
     Route: 065
  8. MESALAMINE [Concomitant]
     Active Substance: MESALAMINE
     Indication: Product used for unknown indication
     Route: 065

REACTIONS (14)
  - Haematochezia [Recovering/Resolving]
  - Caesarean section [Unknown]
  - Product use issue [Unknown]
  - Premature labour [Unknown]
  - Exposure during pregnancy [Recovered/Resolved]
  - Gastrointestinal inflammation [Not Recovered/Not Resolved]
  - Gastrointestinal disorder [Unknown]
  - Chest pain [Recovering/Resolving]
  - Therapeutic product effect decreased [Unknown]
  - Back pain [Unknown]
  - General physical health deterioration [Recovering/Resolving]
  - Off label use [Unknown]
  - Frequent bowel movements [Unknown]
  - Abdominal pain [Unknown]

NARRATIVE: CASE EVENT DATE: 20200101
